FAERS Safety Report 11077728 (Version 1)
Quarter: 2015Q2

REPORT INFORMATION
  Report Type: Spontaneous
  Country: IT (occurrence: IT)
  Receive Date: 20150430
  Receipt Date: 20150430
  Transmission Date: 20150821
  Serious: Yes (Other)
  Sender: FDA-Public Use
  Company Number: IT-SUN PHARMACEUTICAL INDUSTRIES LTD-2014RR-95938

PATIENT
  Age: 36 Year
  Sex: Male

DRUGS (3)
  1. PARACETAMOL [Suspect]
     Active Substance: ACETAMINOPHEN
     Indication: DRUG ABUSE
     Dosage: 3000 MG, SINGLE (3 X 1 G)
     Route: 048
     Dates: start: 20140802, end: 20140802
  2. TOLEP [Suspect]
     Active Substance: OXCARBAZEPINE
     Indication: DRUG ABUSE
     Dosage: 10 DF, SINGLE
     Route: 048
     Dates: start: 20140802, end: 20140802
  3. DAPAROX [Suspect]
     Active Substance: PAROXETINE HYDROCHLORIDE
     Indication: DRUG ABUSE
     Dosage: 2 DF, SINGLE
     Route: 048
     Dates: start: 20140802, end: 20140802

REACTIONS (2)
  - Hyperhidrosis [Recovering/Resolving]
  - Sopor [Recovering/Resolving]

NARRATIVE: CASE EVENT DATE: 20140802
